FAERS Safety Report 4988336-7 (Version None)
Quarter: 2006Q2

REPORT INFORMATION
  Report Type: 
  Country: None (occurrence: None)
  Receive Date: 20060425
  Receipt Date: 20060412
  Transmission Date: 20061013
  Serious: Yes (Death)
  Sender: FDA-Public Use
  Company Number: 23100269

PATIENT
  Age: 81 Year
  Sex: Male

DRUGS (1)
  1. ARGATRA (ARGATROABAN) [Suspect]

REACTIONS (4)
  - EMBOLISM [None]
  - HYPOXIC ENCEPHALOPATHY [None]
  - MECHANICAL COMPLICATION OF IMPLANT [None]
  - PROCEDURAL COMPLICATION [None]
